FAERS Safety Report 9371894 (Version 7)
Quarter: 2013Q4

REPORT INFORMATION
  Report Type: Report from Study
  Country: US (occurrence: US)
  Receive Date: 20130627
  Receipt Date: 20131004
  Transmission Date: 20140711
  Serious: Yes (Other)
  Sender: FDA-Public Use
  Company Number: US-BAYER-2013-075853

PATIENT
  Age: 32 Year
  Sex: Female

DRUGS (1)
  1. MIRENA [Suspect]
     Indication: CONTRACEPTION
     Dosage: 20 MCG/24HR, CONT
     Route: 015
     Dates: start: 20121001, end: 20130617

REACTIONS (19)
  - Urinary tract infection [Recovered/Resolved]
  - Pollakiuria [Recovered/Resolved]
  - Gastrointestinal disorder [Recovered/Resolved]
  - Tremor [None]
  - Speech disorder [None]
  - Balance disorder [None]
  - Gait disturbance [None]
  - Feeling drunk [None]
  - Feeling abnormal [None]
  - Vulvovaginal mycotic infection [Recovered/Resolved]
  - Depression [None]
  - Anger [None]
  - Blood glucose abnormal [None]
  - Hormone level abnormal [None]
  - Vision blurred [None]
  - Vomiting [Not Recovered/Not Resolved]
  - Mood altered [None]
  - Somnolence [None]
  - Vaginal discharge [None]
